FAERS Safety Report 5398921-9 (Version None)
Quarter: 2007Q3

REPORT INFORMATION
  Report Type: 
  Country: None (occurrence: None)
  Receive Date: 20070727
  Receipt Date: 20070723
  Transmission Date: 20080115
  Serious: Yes (Other)
  Sender: FDA-Public Use
  Company Number: US-JNJFOC-20070604963

PATIENT
  Sex: Female
  Weight: 46.72 kg

DRUGS (5)
  1. TYLENOL (CAPLET) [Suspect]
     Route: 048
  2. TYLENOL (CAPLET) [Suspect]
     Indication: HEADACHE
     Route: 048
  3. INSULIN [Concomitant]
     Indication: DIABETES MELLITUS
  4. SYNTHROID [Concomitant]
     Indication: THYROID DISORDER
  5. LUPRON [Concomitant]
     Indication: PRECOCIOUS PUBERTY
     Route: 030

REACTIONS (1)
  - BLOOD GLUCOSE INCREASED [None]
